FAERS Safety Report 8579881-6 (Version None)
Quarter: 2012Q3

REPORT INFORMATION
  Report Type: 
  Country: None (occurrence: None)
  Receive Date: 20120808
  Receipt Date: 20120731
  Transmission Date: 20120928
  Serious: No
  Sender: FDA-Public Use
  Company Number: US-ASTRAZENECA-2012SE54377

PATIENT
  Age: 73 Year
  Sex: Female

DRUGS (3)
  1. TRILIPITAL [Concomitant]
  2. SYMBICORT [Suspect]
     Dosage: UNKNOWN
     Route: 055
  3. NEURONTIN [Concomitant]

REACTIONS (1)
  - AMNESIA [None]
